FAERS Safety Report 4382321-4 (Version None)
Quarter: 2004Q2

REPORT INFORMATION
  Report Type: 
  Country: None (occurrence: None)
  Receive Date: 20040616
  Receipt Date: 20040607
  Transmission Date: 20050107
  Serious: Yes (Hospitalization, Other)
  Sender: FDA-Public Use
  Company Number: HQWYE345008JUN04

PATIENT
  Age: 83 Year
  Sex: Female

DRUGS (9)
  1. EFFEXOR [Suspect]
     Indication: DEPRESSION
     Dosage: 37.5 MG 1X PER 1 DAY
     Route: 048
     Dates: start: 20040101, end: 20040422
  2. METOCLOPRAMIDE HYDROCHLORIDE [Suspect]
     Indication: NAUSEA
     Dosage: 30 MG 1X PER 1 DAY
     Route: 048
     Dates: end: 20040422
  3. RECORMON (ERYTHROPOIETIN HUMAN) [Concomitant]
  4. LIQUEMINE (HEPARIN SODIUM) [Concomitant]
  5. ACETAMINOPHEN [Concomitant]
  6. NORVASC [Concomitant]
  7. NEXIUM [Concomitant]
  8. LAXOBERON (SODIUM PICOSULFATE) [Concomitant]
  9. STILNOX (ZOLPIDEM) [Concomitant]

REACTIONS (6)
  - DISEASE RECURRENCE [None]
  - DRUG INTERACTION [None]
  - DRUG TOXICITY [None]
  - METABOLIC SYNDROME [None]
  - SYSTEMIC INFLAMMATORY RESPONSE SYNDROME [None]
  - URINARY TRACT INFECTION [None]
